FAERS Safety Report 19079615 (Version 1)
Quarter: 2021Q1

REPORT INFORMATION
  Report Type: Spontaneous
  Country: CN (occurrence: CN)
  Receive Date: 20210331
  Receipt Date: 20210331
  Transmission Date: 20210420
  Serious: Yes (Hospitalization, Other)
  Sender: FDA-Public Use
  Company Number: CN-JNJFOC-20210345379

PATIENT
  Age: 69 Year
  Sex: Female

DRUGS (1)
  1. RIVAROXABAN [Suspect]
     Active Substance: RIVAROXABAN
     Indication: ANTICOAGULANT THERAPY
     Dosage: 10 MG, QD
     Route: 048
     Dates: start: 20210101, end: 20210302

REACTIONS (5)
  - Aphasia [Unknown]
  - Ecchymosis [Recovering/Resolving]
  - Platelet count decreased [Recovering/Resolving]
  - Hemiparesis [Unknown]
  - Facial paralysis [Unknown]

NARRATIVE: CASE EVENT DATE: 20210302
